FAERS Safety Report 9660114 (Version 1)
Quarter: 2013Q4

REPORT INFORMATION
  Report Type: Spontaneous
  Country: US (occurrence: US)
  Receive Date: 20131031
  Receipt Date: 20131031
  Transmission Date: 20140711
  Serious: No
  Sender: FDA-Public Use
  Company Number: US-ABBVIE-13P-163-1048718-00

PATIENT
  Sex: Female

DRUGS (1)
  1. BIAXIN [Suspect]
     Indication: INFECTION
     Dosage: TOOK TWO DOSES
     Dates: start: 2003, end: 2003

REACTIONS (1)
  - Urticaria [Recovered/Resolved]
